FAERS Safety Report 10181519 (Version 2)
Quarter: 2014Q3

REPORT INFORMATION
  Report Type: Spontaneous
  Country: US (occurrence: US)
  Receive Date: 20140519
  Receipt Date: 20140821
  Transmission Date: 20150326
  Serious: Yes (Death)
  Sender: FDA-Public Use
  Company Number: US-GLAXOSMITHKLINE-A1073319A

PATIENT
  Age: 76 Year
  Sex: Male

DRUGS (3)
  1. NEXIUM [Concomitant]
     Active Substance: ESOMEPRAZOLE MAGNESIUM
  2. CHEMOTHERAPY [Concomitant]
     Active Substance: UNSPECIFIED INGREDIENT
  3. ARIXTRA [Suspect]
     Active Substance: FONDAPARINUX SODIUM
     Indication: THROMBOSIS
     Dosage: 7.5MG PER DAY
     Route: 058
     Dates: start: 201310, end: 20140413

REACTIONS (1)
  - Pancreatic carcinoma [Fatal]
